FAERS Safety Report 19264559 (Version 1)
Quarter: 2021Q2

REPORT INFORMATION
  Report Type: Spontaneous
  Country: US (occurrence: US)
  Receive Date: 20210517
  Receipt Date: 20210517
  Transmission Date: 20210717
  Serious: Yes (Other)
  Sender: FDA-Public Use
  Company Number: None

PATIENT
  Age: 79 Year
  Sex: Female
  Weight: 65.77 kg

DRUGS (11)
  1. BUDESONIDE INHALATION SUSPENSION [Suspect]
     Active Substance: BUDESONIDE
     Indication: CHRONIC OBSTRUCTIVE PULMONARY DISEASE
     Dosage: ?          QUANTITY:0.5 MG MILLIGRAM(S);?
     Route: 055
     Dates: start: 20210406, end: 20210408
  2. IPRATROPIUM BROMIDE AND ALBUTEROL SULFATE [Concomitant]
     Active Substance: ALBUTEROL SULFATE\IPRATROPIUM BROMIDE
  3. RASBERRY [Concomitant]
  4. ERYTHROMYCIN. [Concomitant]
     Active Substance: ERYTHROMYCIN
  5. MAGNESIUM [Concomitant]
     Active Substance: MAGNESIUM
  6. PROBIOTICS [Concomitant]
     Active Substance: PROBIOTICS NOS
  7. TURMERIC [Concomitant]
     Active Substance: HERBALS\TURMERIC
  8. FISH OIL [Concomitant]
     Active Substance: FISH OIL
  9. BIOTIN [Concomitant]
     Active Substance: BIOTIN
  10. BUDESONIDE INHALATION SUSPENSION [Suspect]
     Active Substance: BUDESONIDE
     Indication: ASTHMA
     Dosage: ?          QUANTITY:0.5 MG MILLIGRAM(S);?
     Route: 055
     Dates: start: 20210406, end: 20210408
  11. PRIMIDONE. [Concomitant]
     Active Substance: PRIMIDONE

REACTIONS (2)
  - Mouth swelling [None]
  - Oral mucosal blistering [None]

NARRATIVE: CASE EVENT DATE: 20210406
